FAERS Safety Report 21019529 (Version 1)
Quarter: 2022Q2

REPORT INFORMATION
  Report Type: Spontaneous
  Country: US (occurrence: US)
  Receive Date: 20220628
  Receipt Date: 20220628
  Transmission Date: 20220721
  Serious: No
  Sender: FDA-Public Use
  Company Number: US-SA-SAC20220624000333

PATIENT
  Sex: Female

DRUGS (11)
  1. DUPIXENT [Suspect]
     Active Substance: DUPILUMAB
     Indication: Asthma
     Dosage: 300 MG, QOW
     Route: 058
     Dates: start: 20220212
  2. ALBUTEROL SULFATE [Concomitant]
     Active Substance: ALBUTEROL SULFATE
  3. IPRATROPIUM [Concomitant]
     Active Substance: IPRATROPIUM
  4. POSACONAZOLE [Concomitant]
     Active Substance: POSACONAZOLE
  5. SODIUM CHLORIDE [Concomitant]
     Active Substance: SODIUM CHLORIDE
  6. TOBRAMYCIN [Concomitant]
     Active Substance: TOBRAMYCIN
  7. BUPROPION HYDROCHLORIDE [BUPROPION HYDROBROMIDE] [Concomitant]
  8. BUPROPION HYDROCHLORIDE [Concomitant]
     Active Substance: BUPROPION HYDROCHLORIDE
  9. CLARITHROMYCIN [Concomitant]
     Active Substance: CLARITHROMYCIN
  10. HYDROCORTISONE [Concomitant]
     Active Substance: HYDROCORTISONE
  11. LEVOTHYROXINE [Concomitant]
     Active Substance: LEVOTHYROXINE

REACTIONS (1)
  - Asthma [Not Recovered/Not Resolved]
